FAERS Safety Report 5996353-3 (Version None)
Quarter: 2008Q4

REPORT INFORMATION
  Report Type: 
  Country: None (occurrence: None)
  Receive Date: 20081212
  Receipt Date: 20081014
  Transmission Date: 20090506
  Serious: No
  Sender: FDA-Public Use
  Company Number: US-ABBOTT-08P-163-0481714-00

PATIENT
  Sex: Female
  Weight: 69.008 kg

DRUGS (2)
  1. HUMIRA [Suspect]
     Indication: RHEUMATOID ARTHRITIS
     Route: 058
     Dates: start: 20081010
  2. HUMIRA [Suspect]
     Route: 058
     Dates: start: 20080501

REACTIONS (2)
  - EYE IRRITATION [None]
  - PHOTOPHOBIA [None]
